FAERS Safety Report 9640166 (Version 2)
Quarter: 2013Q4

REPORT INFORMATION
  Report Type: Spontaneous
  Country: US (occurrence: US)
  Receive Date: 20131023
  Receipt Date: 20131115
  Transmission Date: 20140711
  Serious: No
  Sender: FDA-Public Use
  Company Number: US-PFIZER INC-2013300434

PATIENT
  Age: 34 Year
  Sex: Male

DRUGS (6)
  1. EFFEXOR XR [Suspect]
     Indication: MAJOR DEPRESSION
     Dosage: 150 MG, 1X/DAY
     Route: 048
  2. EFFEXOR XR [Suspect]
     Indication: ANXIETY
     Dosage: 300 MG (BY TAKING 2 CAPSULES OF 150MG), 1X/DAY
     Route: 048
     Dates: start: 2008, end: 20131012
  3. EFFEXOR XR [Suspect]
     Dosage: 600 MG (BY TAKING 4 CAPSULES OF 150MG), 1X/DAY
     Route: 048
     Dates: start: 20131012, end: 20131015
  4. WELLBUTRIN XL [Concomitant]
     Indication: MAJOR DEPRESSION
     Dosage: 450 MG, 1X/DAY
     Route: 048
     Dates: start: 2008
  5. ABILIFY [Concomitant]
     Indication: MAJOR DEPRESSION
     Dosage: 4 MG, 1X/DAY (AT BEDTIME)
     Route: 048
     Dates: start: 2011
  6. DEPLIN [Concomitant]
     Indication: MAJOR DEPRESSION
     Dosage: 15 MG, 1X/DAY
     Route: 048
     Dates: start: 2013

REACTIONS (3)
  - Extra dose administered [Recovered/Resolved]
  - Dysphoria [Recovering/Resolving]
  - Asthenia [Recovered/Resolved]
